FAERS Safety Report 23916743 (Version 3)
Quarter: 2024Q3

REPORT INFORMATION
  Report Type: Spontaneous
  Country: ZA (occurrence: ZA)
  Receive Date: 20240529
  Receipt Date: 20240716
  Transmission Date: 20241017
  Serious: Yes (Death, Hospitalization, Other)
  Sender: JOHNSON AND JOHNSON
  Company Number: ZA-JNJFOC-20240571824

PATIENT
  Age: 70 Year
  Sex: Male
  Weight: 95 kg

DRUGS (1)
  1. TECLISTAMAB [Suspect]
     Active Substance: TECLISTAMAB
     Indication: Plasma cell myeloma
     Route: 058
     Dates: start: 20240223, end: 20240503

REACTIONS (4)
  - Klebsiella sepsis [Fatal]
  - Cytomegalovirus enterocolitis [Recovering/Resolving]
  - Diarrhoea [Recovering/Resolving]
  - Plasma cell myeloma [Unknown]

NARRATIVE: CASE EVENT DATE: 20240306
